FAERS Safety Report 4666698-8 (Version None)
Quarter: 2005Q2

REPORT INFORMATION
  Report Type: 
  Country: None (occurrence: None)
  Receive Date: 20050519
  Receipt Date: 20050106
  Transmission Date: 20051028
  Serious: Yes (Death, Hospitalization)
  Sender: FDA-Public Use
  Company Number: PHBS2005JP00547

PATIENT
  Age: 64 Year
  Sex: Female

DRUGS (3)
  1. DISODIUM INCADRONATE [Concomitant]
  2. AREDIA [Suspect]
     Indication: METASTASES TO BONE
     Dosage: 15 MG, BIW
     Route: 042
  3. ALENDRONATE SODIUM [Suspect]
     Dosage: UNK, BIW
     Route: 042

REACTIONS (9)
  - BONE DISORDER [None]
  - BONE LESION [None]
  - EXCESSIVE GRANULATION TISSUE [None]
  - FEELING ABNORMAL [None]
  - JAW DISORDER [None]
  - MALIGNANT NEOPLASM PROGRESSION [None]
  - METASTASES TO LIVER [None]
  - OSTEONECROSIS [None]
  - TOOTH EXTRACTION [None]
